FAERS Safety Report 4529653-4 (Version None)
Quarter: 2004Q4

REPORT INFORMATION
  Report Type: 
  Country: None (occurrence: None)
  Receive Date: 20041216
  Receipt Date: 20041206
  Transmission Date: 20050328
  Serious: Yes (Death, Life-Threatening, Other)
  Sender: FDA-Public Use
  Company Number: US-MERCK-0412USA00702

PATIENT
  Age: 73 Year
  Sex: Male

DRUGS (10)
  1. HYDROCODONE HYDROCHLORIDE [Concomitant]
     Route: 065
  2. PERSANTIN INJ [Concomitant]
     Route: 065
  3. ADALAT [Concomitant]
     Route: 065
  4. COSOPT [Suspect]
     Route: 047
     Dates: end: 20030501
  5. CELLCEPT [Concomitant]
     Route: 048
  6. CELLCEPT [Concomitant]
     Route: 048
  7. LIPITOR [Concomitant]
     Route: 065
  8. BACTRIM [Concomitant]
     Route: 065
  9. PLAVIX [Concomitant]
     Route: 065
  10. CLONIDINE [Concomitant]
     Route: 065

REACTIONS (8)
  - BLOOD DISORDER [None]
  - CARCINOMA [None]
  - CARDIAC DISORDER [None]
  - CEREBROVASCULAR ACCIDENT [None]
  - EMPHYSEMA [None]
  - HEART TRANSPLANT [None]
  - RENAL DISORDER [None]
  - RENAL FAILURE [None]
